FAERS Safety Report 12400250 (Version 1)
Quarter: 2016Q2

REPORT INFORMATION
  Report Type: Spontaneous
  Country: US (occurrence: None)
  Receive Date: 20160524
  Receipt Date: 20160524
  Transmission Date: 20160815
  Serious: Yes (Other)
  Sender: FDA-Public Use
  Company Number: None

PATIENT
  Age: 37 Year
  Sex: Female
  Weight: 74.84 kg

DRUGS (1)
  1. BOTOX [Suspect]
     Active Substance: ONABOTULINUMTOXINA
     Dosage: 31 INJECTION (S) INTO THE MUSCLE
     Route: 030
     Dates: start: 20160519

REACTIONS (2)
  - Somnolence [None]
  - Initial insomnia [None]

NARRATIVE: CASE EVENT DATE: 20160520
